FAERS Safety Report 7477654-9 (Version None)
Quarter: 2011Q2

REPORT INFORMATION
  Report Type: 
  Country: None (occurrence: None)
  Receive Date: 20110513
  Receipt Date: 20110119
  Transmission Date: 20111010
  Serious: Yes (Hospitalization, Other)
  Sender: FDA-Public Use
  Company Number: US-BAYER-201022419NA

PATIENT
  Age: 23 Year
  Sex: Female
  Weight: 113.38 kg

DRUGS (27)
  1. LEVOTHYROXINE SODIUM [Concomitant]
     Dosage: 125 MCG/24HR, UNK
     Route: 048
     Dates: start: 20030505
  2. METFORMIN HCL [Concomitant]
     Indication: POLYCYSTIC OVARIES
     Dosage: 500 MG, QD
     Route: 048
     Dates: start: 20030219, end: 20080602
  3. GLUCOPHAGE [Concomitant]
     Indication: POLYCYSTIC OVARIES
  4. HEPARIN [Concomitant]
  5. THYROXIN [Concomitant]
  6. PRENATAL VITAMINS [Concomitant]
  7. LEVOXYL [Concomitant]
     Indication: HYPOTHYROIDISM
     Dosage: UNK
     Dates: start: 20030101, end: 20080101
  8. METOCLOPRAMIDE [Suspect]
     Indication: NAUSEA
  9. HYDROCHLOROTHIAZIDE [Concomitant]
  10. HYDROCHLOROTHIAZIDE [Concomitant]
     Dosage: 12.5 MCG/24HR, UNK
     Route: 048
  11. CLARINEX [Concomitant]
     Indication: MULTIPLE ALLERGIES
     Dosage: 5 MG, QD
     Dates: start: 20050830
  12. REGLAN [Concomitant]
     Dosage: 5 MG, TID
  13. LEUPROLIDE ACETATE [Concomitant]
     Dosage: UNK
     Dates: start: 20040502
  14. ALDOMET [Concomitant]
  15. ZOLOFT [Concomitant]
  16. LORAZEPAM [Concomitant]
     Indication: ANXIETY
  17. YASMIN [Suspect]
     Indication: ORAL CONTRACEPTION
     Dosage: UNK UNK, UNK
     Route: 048
     Dates: start: 20030201, end: 20050915
  18. LOVENOX [Concomitant]
     Indication: ANTICOAGULANT THERAPY
     Dosage: 100 MG/ML, UNK
     Route: 058
     Dates: start: 20030101, end: 20070101
  19. COUMADIN [Concomitant]
     Dosage: UNK
  20. ASPIRIN [Concomitant]
  21. PROGESTERONE [Concomitant]
  22. NORVASC [Concomitant]
     Indication: HYPERTENSION
     Dosage: 5 MG, QD
     Dates: start: 20020221, end: 20050928
  23. NAPROXEN [Concomitant]
     Indication: ANTIINFLAMMATORY THERAPY
     Dosage: 500 MG, UNK
     Route: 048
     Dates: start: 20050412
  24. ZITHROMAX [Concomitant]
     Dosage: 250 MG, UNK
     Route: 048
     Dates: start: 20040101, end: 20060101
  25. HYDROCHLOROTHIAZIDE [Concomitant]
     Indication: DIURETIC THERAPY
     Dosage: 25 MG, UNK
     Route: 048
     Dates: start: 20030505, end: 20051104
  26. LEUPROLIDE ACETATE [Concomitant]
     Dosage: UNK
     Dates: start: 20020104
  27. ESTRADIOL [Suspect]
     Dosage: 2 MG, UNK

REACTIONS (12)
  - DIZZINESS [None]
  - CHOLECYSTITIS CHRONIC [None]
  - CHOLELITHIASIS [None]
  - PULMONARY EMBOLISM [None]
  - MUSCULOSKELETAL PAIN [None]
  - DYSPNOEA [None]
  - DEEP VEIN THROMBOSIS [None]
  - DYSPNOEA EXERTIONAL [None]
  - GALLBLADDER DISORDER [None]
  - CHEST PAIN [None]
  - ANXIETY [None]
  - SINUS TACHYCARDIA [None]
